FAERS Safety Report 9351221 (Version 1)
Quarter: 2013Q2

REPORT INFORMATION
  Report Type: Spontaneous
  Country: DE (occurrence: DE)
  Receive Date: 20130617
  Receipt Date: 20130617
  Transmission Date: 20140414
  Serious: Yes (Other)
  Sender: FDA-Public Use
  Company Number: DE-PFIZER INC-2013178883

PATIENT
  Age: 45 Year
  Sex: Female

DRUGS (3)
  1. LYRICA [Suspect]
     Indication: CEREBROVASCULAR ACCIDENT
     Dosage: UNK
     Dates: start: 201212
  2. LYRICA [Suspect]
     Dosage: 25 MG, 1X/DAY
  3. CERTICAN [Concomitant]
     Dosage: UNK

REACTIONS (2)
  - Off label use [Unknown]
  - Vaginal haemorrhage [Unknown]
